FAERS Safety Report 8908756 (Version 1)
Quarter: 2012Q4

REPORT INFORMATION
  Report Type: 
  Country: US (occurrence: US)
  Receive Date: 20121114
  Receipt Date: 20121114
  Transmission Date: 20130627
  Serious: Yes (Other)
  Sender: FDA-Public Use
  Company Number: US-ASTRAZENECA-2012SE84337

PATIENT
  Age: 295 Month
  Sex: Male
  Weight: 90.7 kg

DRUGS (4)
  1. SEROQUEL [Suspect]
     Indication: PSYCHOTIC DISORDER
     Route: 048
     Dates: start: 201201
  2. ALPRAZOLAM [Concomitant]
     Indication: ANXIETY
     Route: 048
  3. BUPROPION XL [Concomitant]
     Route: 048
  4. ACETYLCHOLIN [Concomitant]
     Dosage: daily
     Route: 048

REACTIONS (5)
  - Suicidal ideation [Unknown]
  - Agitation [Unknown]
  - Aggression [Unknown]
  - Irritability [Unknown]
  - Drug dose omission [Unknown]
